FAERS Safety Report 5483112-3 (Version None)
Quarter: 2007Q4

REPORT INFORMATION
  Report Type: 
  Country: None (occurrence: None)
  Receive Date: 20071011
  Receipt Date: 20071004
  Transmission Date: 20080405
  Serious: Yes (Other)
  Sender: FDA-Public Use
  Company Number: PT-ABBOTT-07P-130-0419499-00

PATIENT
  Sex: Male

DRUGS (3)
  1. KALETRA [Suspect]
     Indication: HIV TEST POSITIVE
     Dosage: 800/200 MG, 2 200/50 MG
     Route: 048
     Dates: start: 20070901
  2. ABACAVIR SULFATE W/LAMIVUDINE [Suspect]
     Indication: HIV TEST POSITIVE
     Route: 048
     Dates: start: 20070901
  3. COTRIM [Suspect]
     Indication: HIV TEST POSITIVE
     Route: 048
     Dates: start: 20070901

REACTIONS (1)
  - HAEMOLYTIC ANAEMIA [None]
